FAERS Safety Report 9856453 (Version 1)
Quarter: 2014Q1

REPORT INFORMATION
  Report Type: Spontaneous
  Country: IT (occurrence: IT)
  Receive Date: 20140130
  Receipt Date: 20140130
  Transmission Date: 20141002
  Serious: Yes (Other)
  Sender: FDA-Public Use
  Company Number: PHHY2014IT009195

PATIENT
  Age: 48 Year
  Sex: Male

DRUGS (5)
  1. RIBAVIRIN [Suspect]
     Indication: ANTIVIRAL TREATMENT
  2. PEGYLATED INTERFERON-RIBAVIRIN [Suspect]
     Indication: ANTIVIRAL TREATMENT
  3. INTERFERON [Suspect]
     Indication: ANTIVIRAL TREATMENT
  4. TACROLIMUS [Concomitant]
     Indication: IMMUNOSUPPRESSION
  5. CORTICOSTEROIDS [Concomitant]
     Indication: IMMUNOSUPPRESSION

REACTIONS (6)
  - Cryoglobulinaemia [Unknown]
  - Cutaneous vasculitis [Unknown]
  - Skin ulcer [Unknown]
  - Glomerulonephritis membranoproliferative [Unknown]
  - Hepatitis C [Unknown]
  - Disease recurrence [Unknown]
